FAERS Safety Report 5095411-8 (Version None)
Quarter: 2006Q3

REPORT INFORMATION
  Report Type: 
  Country: None (occurrence: None)
  Receive Date: 20060901
  Receipt Date: 20060822
  Transmission Date: 20061208
  Serious: Yes (Other)
  Sender: FDA-Public Use
  Company Number: US-SANOFI-SYNTHELABO-A03200605297

PATIENT
  Age: 43 Year
  Sex: Female

DRUGS (3)
  1. PLAVIX [Suspect]
     Indication: RENAL ARTERY STENT PLACEMENT
     Dosage: UNK
     Route: 048
     Dates: start: 20060724, end: 20060801
  2. ATENOLOL [Concomitant]
     Dosage: UNK
     Route: 048
  3. LEVOTHYROXINE SODIUM [Concomitant]
     Dosage: UNK
     Route: 048

REACTIONS (1)
  - SERUM SICKNESS [None]
